FAERS Safety Report 7435756-7 (Version None)
Quarter: 2011Q2

REPORT INFORMATION
  Report Type: 
  Country: None (occurrence: None)
  Receive Date: 20110425
  Receipt Date: 20110329
  Transmission Date: 20111010
  Serious: No
  Sender: FDA-Public Use
  Company Number: US-B.I. PHARMACEUTICALS,INC./RIDGEFIELD-2011-BP-09786BP

PATIENT
  Sex: Female

DRUGS (5)
  1. GAVISCON [Concomitant]
     Indication: GASTROOESOPHAGEAL REFLUX DISEASE
     Route: 048
  2. ZANTAC 150 [Suspect]
     Indication: GASTROOESOPHAGEAL REFLUX DISEASE
  3. VITAMIN D [Concomitant]
  4. ZANTAC 150 [Suspect]
     Indication: DYSPEPSIA
     Dosage: 150 MG
     Route: 048
     Dates: start: 20110319, end: 20110329
  5. ASCORBIC ACID [Concomitant]

REACTIONS (5)
  - LETHARGY [None]
  - ABDOMINAL DISTENSION [None]
  - FLATULENCE [None]
  - PRURITUS [None]
  - RASH [None]
